FAERS Safety Report 16489357 (Version 1)
Quarter: 2019Q2

REPORT INFORMATION
  Report Type: Spontaneous
  Country: US (occurrence: US)
  Receive Date: 20190517
  Receipt Date: 20190517
  Transmission Date: 20190711
  Serious: No
  Sender: FDA-Public Use
  Company Number: None

PATIENT
  Sex: Male

DRUGS (1)
  1. DEFERASIROX 500MG ACTAVIS [Suspect]
     Active Substance: DEFERASIROX
     Indication: SICKLE CELL DISEASE
     Dosage: ?          OTHER DOSE:1000MG/1500MG;?
     Route: 048
     Dates: start: 20190420

REACTIONS (2)
  - Loss of personal independence in daily activities [None]
  - Gastric disorder [None]
